FAERS Safety Report 24376983 (Version 1)
Quarter: 2024Q3

REPORT INFORMATION
  Report Type: Spontaneous
  Country: IQ (occurrence: IQ)
  Receive Date: 20240930
  Receipt Date: 20240930
  Transmission Date: 20241017
  Serious: Yes (Other)
  Sender: ORGANON
  Company Number: IQ-ORGANON-O2409IRQ001909

PATIENT
  Age: 32 Year
  Sex: Female

DRUGS (1)
  1. IMPLANON [Suspect]
     Active Substance: ETONOGESTREL
     Indication: Contraception
     Dosage: 1 IMPLANT IN LEFT ARM
     Route: 059

REACTIONS (3)
  - Device dislocation [Recovered/Resolved]
  - Neuropathy peripheral [Unknown]
  - Complication associated with device [Recovered/Resolved]
